FAERS Safety Report 20404162 (Version 3)
Quarter: 2022Q1

REPORT INFORMATION
  Report Type: Spontaneous
  Country: JP (occurrence: JP)
  Receive Date: 20220131
  Receipt Date: 20220224
  Transmission Date: 20220423
  Serious: Yes (Other)
  Sender: FDA-Public Use
  Company Number: JP-ABBVIE-22K-087-4255978-00

PATIENT
  Age: 50 Year
  Sex: Male

DRUGS (4)
  1. GLECAPREVIR\PIBRENTASVIR [Suspect]
     Active Substance: GLECAPREVIR\PIBRENTASVIR
     Indication: Chronic hepatitis C
     Route: 048
     Dates: start: 20211208, end: 20220201
  2. GEMCITABINE HYDROCHLORIDE [Concomitant]
     Active Substance: GEMCITABINE HYDROCHLORIDE
     Indication: Lymphoma
     Route: 041
     Dates: start: 20220117
  3. CISPLATIN [Concomitant]
     Active Substance: CISPLATIN
     Indication: Lymphoma
     Route: 041
     Dates: start: 20220117
  4. DECADRON [Concomitant]
     Active Substance: DEXAMETHASONE
     Indication: Lymphoma
     Route: 041
     Dates: start: 20220117

REACTIONS (2)
  - Lymphoma [Recovering/Resolving]
  - Jaundice [Recovering/Resolving]

NARRATIVE: CASE EVENT DATE: 20220121
